FAERS Safety Report 20520315 (Version 1)
Quarter: 2022Q1

REPORT INFORMATION
  Report Type: Spontaneous
  Country: US (occurrence: None)
  Receive Date: 20220225
  Receipt Date: 20220225
  Transmission Date: 20220423
  Serious: Yes (Hospitalization, Other)
  Sender: FDA-Public Use
  Company Number: 2022A082004

PATIENT
  Age: 58 Year
  Sex: Male

DRUGS (3)
  1. BRILINTA [Suspect]
     Active Substance: TICAGRELOR
     Indication: Vascular stent stenosis
     Dosage: 180.0MG UNKNOWN
     Route: 048
  2. PRASUGREL [Concomitant]
     Active Substance: PRASUGREL
     Route: 065
  3. ASPIRIN [Concomitant]
     Active Substance: ASPIRIN
     Route: 065

REACTIONS (11)
  - Acute coronary syndrome [Unknown]
  - Angina unstable [Unknown]
  - Cardiac ventricular disorder [Unknown]
  - Cardiac arrest [Unknown]
  - Coronary artery stenosis [Unknown]
  - Chest discomfort [Unknown]
  - Loss of personal independence in daily activities [Unknown]
  - Confusional state [Recovered/Resolved]
  - Chest pain [Unknown]
  - Sinus bradycardia [Unknown]
  - Syncope [Unknown]
